FAERS Safety Report 10633510 (Version 1)
Quarter: 2014Q4

REPORT INFORMATION
  Report Type: Spontaneous
  Country: IL (occurrence: IL)
  Receive Date: 20141205
  Receipt Date: 20141205
  Transmission Date: 20150529
  Serious: Yes (Hospitalization)
  Sender: FDA-Public Use
  Company Number: IL-JNJFOC-20141116303

PATIENT
  Age: 64 Year
  Sex: Female

DRUGS (1)
  1. CAELYX [Suspect]
     Active Substance: DOXORUBICIN HYDROCHLORIDE
     Indication: OVARIAN CANCER
     Dosage: 4 TO 6 CYCLES OF 40 MG EVERY 4 WEEKS
     Route: 042

REACTIONS (5)
  - Oedema [Recovering/Resolving]
  - Rash [Recovering/Resolving]
  - Eyelid oedema [None]
  - Dermatomyositis [Recovering/Resolving]
  - Erythema [Recovering/Resolving]
